FAERS Safety Report 10224491 (Version 1)
Quarter: 2014Q2

REPORT INFORMATION
  Report Type: Spontaneous
  Country: US (occurrence: US)
  Receive Date: 20140609
  Receipt Date: 20140609
  Transmission Date: 20141212
  Serious: No
  Sender: FDA-Public Use
  Company Number: US-BAYER-2014-082554

PATIENT
  Sex: Female

DRUGS (7)
  1. ALEVE GELCAPS [Suspect]
     Indication: ARTHRITIS
     Dosage: 2 DF, QD
     Route: 048
     Dates: start: 20140529, end: 20140530
  2. BAYER ASPIRIN SUGAR FREE LOW DOSE ENTERIC [Concomitant]
  3. CLONAZEPAM [Concomitant]
  4. CITALOPRAM [Concomitant]
  5. LOVASTATIN [Concomitant]
  6. NIACIN [Concomitant]
  7. LISINOPRIL [Concomitant]

REACTIONS (2)
  - Diarrhoea [Not Recovered/Not Resolved]
  - Intentional product misuse [Unknown]
